FAERS Safety Report 9834181 (Version 1)
Quarter: 2014Q1

REPORT INFORMATION
  Report Type: Spontaneous
  Country: US (occurrence: US)
  Receive Date: 20140122
  Receipt Date: 20140122
  Transmission Date: 20141002
  Serious: No
  Sender: FDA-Public Use
  Company Number: US-BAUSCH-BL-2013-002465

PATIENT
  Age: 79 Year
  Sex: Male
  Weight: 62.65 kg

DRUGS (3)
  1. ALAWAY (KETOTIFEN FUMARATE OPHTHALMIC SOLUTION) [Suspect]
     Indication: EYE PRURITUS
     Dosage: 1 DROP; TWICE DAILY; LEFT EYE
     Route: 047
     Dates: start: 20130423, end: 20130423
  2. ALAWAY (KETOTIFEN FUMARATE OPHTHALMIC SOLUTION) [Suspect]
     Indication: EYE IRRITATION
  3. ACETYLSALICYLIC ACID [Concomitant]

REACTIONS (1)
  - Somnolence [Recovered/Resolved]
